FAERS Safety Report 14375666 (Version 1)
Quarter: 2018Q1

REPORT INFORMATION
  Report Type: Spontaneous
  Country: US (occurrence: US)
  Receive Date: 20180110
  Receipt Date: 20180110
  Transmission Date: 20180509
  Serious: Yes (Life-Threatening, Hospitalization, Other)
  Sender: FDA-Public Use
  Company Number: None

PATIENT
  Age: 68 Year
  Sex: Female
  Weight: 91.63 kg

DRUGS (9)
  1. ASPRIN [Concomitant]
     Active Substance: ASPIRIN
  2. COENZYME Q10 [Concomitant]
     Active Substance: UBIDECARENONE
  3. FENTANYL. [Suspect]
     Active Substance: FENTANYL
     Indication: PAIN
     Dosage: 12 MCG/HR DIS 2 PKGS 56 PATCHES IN EA BY 1 PATCH EXTERN EVERY 72 HRS. ON THE SKIN
     Route: 061
     Dates: start: 20170920, end: 20170921
  4. MULTI [Concomitant]
  5. VITAMIN C [Concomitant]
     Active Substance: ASCORBIC ACID
  6. PROTONIX [Concomitant]
     Active Substance: PANTOPRAZOLE SODIUM
  7. GLIPIZIDE ER [Concomitant]
     Active Substance: GLIPIZIDE
  8. METOPROLOL SUCCINATE. [Concomitant]
     Active Substance: METOPROLOL SUCCINATE
  9. ASTROVASTIN [Concomitant]

REACTIONS (2)
  - Myocardial infarction [None]
  - Cerebrovascular accident [None]

NARRATIVE: CASE EVENT DATE: 20170922
